FAERS Safety Report 4462233-8 (Version None)
Quarter: 2004Q3

REPORT INFORMATION
  Report Type: 
  Country: None (occurrence: None)
  Receive Date: 20040929
  Receipt Date: 20040920
  Transmission Date: 20050211
  Serious: Yes (Other)
  Sender: FDA-Public Use
  Company Number: PHEH2004US10204

PATIENT
  Age: 53 Year
  Sex: Male
  Weight: 68 kg

DRUGS (10)
  1. ELIDEL [Suspect]
     Indication: DERMATITIS ATOPIC
     Dosage: QD - BID
     Route: 061
     Dates: start: 20020314, end: 20040917
  2. ELOCON [Concomitant]
  3. PSORCON [Concomitant]
  4. ZONALON [Concomitant]
  5. METROGEL [Concomitant]
  6. KLARON [Concomitant]
  7. PROTOPIC [Concomitant]
  8. LIDA-MANTLE [Concomitant]
  9. DICLOXACILLIN [Concomitant]
  10. HC LOTION [Concomitant]

REACTIONS (2)
  - LYMPHOMA [None]
  - MASS [None]
